FAERS Safety Report 6070033-0 (Version None)
Quarter: 2009Q1

REPORT INFORMATION
  Report Type: 
  Country: None (occurrence: None)
  Receive Date: 20090209
  Receipt Date: 20090131
  Transmission Date: 20090719
  Serious: Yes (Hospitalization)
  Sender: FDA-Public Use
  Company Number: PHEH2009US01395

PATIENT
  Age: 45 Year
  Sex: Female

DRUGS (3)
  1. FORADIL [Suspect]
     Indication: CHRONIC OBSTRUCTIVE PULMONARY DISEASE
     Dosage: 12 MG
     Dates: start: 20070701
  2. PREDNISONE [Concomitant]
     Dosage: UNK
  3. ALBUTEROL [Concomitant]
     Dosage: UNK

REACTIONS (1)
  - RESPIRATORY FAILURE [None]
